FAERS Safety Report 6801366-5 (Version None)
Quarter: 2010Q2

REPORT INFORMATION
  Report Type: 
  Country: None (occurrence: None)
  Receive Date: 20100629
  Receipt Date: 20100625
  Transmission Date: 20101027
  Serious: Yes (Hospitalization)
  Sender: FDA-Public Use
  Company Number: A0867229A

PATIENT
  Age: 68 Year
  Sex: Female

DRUGS (10)
  1. ADVAIR DISKUS 100/50 [Suspect]
     Indication: ASTHMA
     Dosage: 1PUFF TWICE PER DAY
     Route: 055
  2. BUPROPION HYDROCHLORIDE [Suspect]
     Indication: DRUG USE FOR UNKNOWN INDICATION
     Route: 048
  3. PROAIR HFA [Concomitant]
  4. KLOR-CON [Concomitant]
  5. SIMVASTATIN [Concomitant]
  6. GLIMEPIRIDE [Concomitant]
  7. AMLODIPINE BESYLATE [Concomitant]
  8. METOPROLOL [Concomitant]
  9. LISINOPRIL [Concomitant]
  10. FUROSEMIDE [Concomitant]

REACTIONS (3)
  - AMNESIA [None]
  - CEREBROVASCULAR ACCIDENT [None]
  - MOVEMENT DISORDER [None]
